FAERS Safety Report 6939332-1 (Version None)
Quarter: 2010Q3

REPORT INFORMATION
  Report Type: 
  Country: None (occurrence: None)
  Receive Date: 20100824
  Receipt Date: 20100823
  Transmission Date: 20110219
  Serious: No
  Sender: FDA-Public Use
  Company Number: US-ROXANE LABORATORIES, INC.-2010-RO-01134RO

PATIENT
  Age: 52 Year
  Sex: Male

DRUGS (1)
  1. AZATHIOPRINE [Suspect]
     Dosage: 100 MG
     Route: 048
     Dates: start: 20091117

REACTIONS (1)
  - DIARRHOEA [None]
